FAERS Safety Report 7935945-9 (Version None)
Quarter: 2011Q4

REPORT INFORMATION
  Report Type: 
  Country: None (occurrence: None)
  Receive Date: 20111123
  Receipt Date: 20111115
  Transmission Date: 20120403
  Serious: Yes (Other)
  Sender: FDA-Public Use
  Company Number: US-NOVOPROD-336136

PATIENT

DRUGS (11)
  1. VICTOZA [Suspect]
     Indication: TYPE 2 DIABETES MELLITUS
     Dosage: 1.8 MG, QD
     Route: 058
     Dates: start: 20110301, end: 20110901
  2. GLUCOPHAGE [Concomitant]
     Indication: TYPE 2 DIABETES MELLITUS
     Dosage: UNK
     Dates: end: 20110912
  3. BYSTOLIC [Concomitant]
     Indication: HYPERTENSION
     Dosage: 10 MG, BID
  4. CRESTOR [Concomitant]
     Indication: BLOOD CHOLESTEROL INCREASED
     Dosage: 5 UNK, QD
  5. VICTOZA [Suspect]
     Dosage: 1.2 MG, QD
     Route: 058
     Dates: start: 20110901, end: 20110930
  6. NIASPAN [Concomitant]
     Indication: BLOOD CHOLESTEROL INCREASED
     Dosage: 500 UNK, QD
  7. ASPIRIN [Concomitant]
     Indication: PRODUCT USED FOR UNKNOWN INDICATION
     Dosage: 81 UNK, QD
  8. LOTENSIN                           /00498401/ [Concomitant]
     Indication: HYPERTENSION
     Dosage: 20 UNK, QD
  9. ALDACTONE [Concomitant]
     Indication: HYPERTENSION
     Dosage: 12.5 UNK, BID
  10. MICARDIS [Concomitant]
     Indication: HYPERTENSION
     Dosage: 80 UNK, QD
  11. LOVAZA [Concomitant]
     Indication: BLOOD TRIGLYCERIDES INCREASED
     Dosage: 2 G, BID

REACTIONS (2)
  - NIGHT SWEATS [None]
  - PANCREATITIS [None]
